FAERS Safety Report 15994092 (Version 3)
Quarter: 2021Q1

REPORT INFORMATION
  Report Type: Other
  Country: US (occurrence: US)
  Receive Date: 20190222
  Receipt Date: 20210129
  Transmission Date: 20210419
  Serious: Yes (Hospitalization, Other)
  Sender: FDA-Public Use
  Company Number: US-ROCHE-2263946

PATIENT
  Age: 28 Year
  Sex: Female
  Weight: 131.21 kg

DRUGS (4)
  1. OCREVUS [Suspect]
     Active Substance: OCRELIZUMAB
     Indication: PRIMARY PROGRESSIVE MULTIPLE SCLEROSIS
     Route: 065
     Dates: start: 20180323
  2. OCREVUS [Suspect]
     Active Substance: OCRELIZUMAB
     Route: 065
     Dates: start: 201803
  3. BACLOFEN. [Concomitant]
     Active Substance: BACLOFEN
  4. METHYLPRED [Concomitant]
     Active Substance: METHYLPREDNISOLONE
     Dosage: TAPER VERSION

REACTIONS (6)
  - Back pain [Not Recovered/Not Resolved]
  - Headache [Recovering/Resolving]
  - Vertigo [Not Recovered/Not Resolved]
  - Urinary tract infection [Unknown]
  - Intervertebral disc protrusion [Not Recovered/Not Resolved]
  - Dizziness [Not Recovered/Not Resolved]

NARRATIVE: CASE EVENT DATE: 201811
